FAERS Safety Report 4744404-6 (Version None)
Quarter: 2005Q3

REPORT INFORMATION
  Report Type: 
  Country: None (occurrence: None)
  Receive Date: 20050809
  Receipt Date: 20050729
  Transmission Date: 20060218
  Serious: Yes (Other)
  Sender: FDA-Public Use
  Company Number: 2005062630

PATIENT
  Sex: Female
  Weight: 59.8748 kg

DRUGS (3)
  1. ZITHROMAX [Suspect]
     Indication: IMPAIRED GASTRIC EMPTYING
     Dosage: 400 MG (400 MG, 1 IN 1 D), ORAL
     Route: 048
     Dates: start: 20050310, end: 20050401
  2. ERYTHROMYCIN [Concomitant]
  3. PREVACID [Concomitant]

REACTIONS (4)
  - CHEST PAIN [None]
  - DYSPNOEA [None]
  - FATIGUE [None]
  - HEART RATE INCREASED [None]
